FAERS Safety Report 7542525-6 (Version None)
Quarter: 2011Q2

REPORT INFORMATION
  Report Type: 
  Country: None (occurrence: None)
  Receive Date: 20110613
  Receipt Date: 20110609
  Transmission Date: 20111010
  Serious: Yes (Death, Hospitalization, Other)
  Sender: FDA-Public Use
  Company Number: JP-ABBOTT-11P-087-0731374-00

PATIENT
  Sex: Male
  Weight: 46 kg

DRUGS (3)
  1. HUMIRA [Suspect]
     Indication: CROHN'S DISEASE
     Route: 058
     Dates: start: 20110331, end: 20110331
  2. BIFIDOBACTERIUM [Concomitant]
     Indication: CROHN'S DISEASE
     Route: 048
     Dates: end: 20110504
  3. MESALAMINE [Concomitant]
     Indication: CROHN'S DISEASE
     Route: 048
     Dates: end: 20110504

REACTIONS (6)
  - BLOOD BILIRUBIN INCREASED [None]
  - BLOOD AMYLASE INCREASED [None]
  - CHOLANGITIS SUPPURATIVE [None]
  - HEPATIC FAILURE [None]
  - BILE DUCT OBSTRUCTION [None]
  - LIVER DISORDER [None]
